FAERS Safety Report 16263207 (Version 1)
Quarter: 2019Q2

REPORT INFORMATION
  Report Type: Spontaneous
  Country: US (occurrence: US)
  Receive Date: 20190327
  Receipt Date: 20190327
  Transmission Date: 20190711
  Serious: No
  Sender: FDA-Public Use
  Company Number: None

PATIENT
  Age: 39 Year
  Sex: Female

DRUGS (1)
  1. STELARA [Suspect]
     Active Substance: USTEKINUMAB
     Dosage: ?          OTHER
     Route: 058
     Dates: start: 201808

REACTIONS (4)
  - Therapy change [None]
  - Symptom recurrence [None]
  - Off label use [None]
  - Psoriasis [None]

NARRATIVE: CASE EVENT DATE: 20190301
